FAERS Safety Report 7466635-7 (Version None)
Quarter: 2011Q2

REPORT INFORMATION
  Report Type: 
  Country: None (occurrence: None)
  Receive Date: 20110509
  Receipt Date: 20110120
  Transmission Date: 20111010
  Serious: No
  Sender: FDA-Public Use
  Company Number: US-SANOFI-AVENTIS-2011SA004637

PATIENT
  Age: 70 Year
  Sex: Male
  Weight: 102.96 kg

DRUGS (8)
  1. OPTICLICK [Suspect]
     Dates: start: 20050601
  2. ASPIRIN [Concomitant]
  3. INSULIN DETEMIR [Concomitant]
     Dosage: DOSE:60 UNIT(S)
  4. APIDRA [Suspect]
     Route: 058
     Dates: start: 20050601
  5. DIOVAN HCT [Concomitant]
  6. COREG [Concomitant]
  7. APIDRA [Suspect]
     Route: 058
     Dates: start: 20050601
  8. ZOCOR [Concomitant]

REACTIONS (2)
  - MEMORY IMPAIRMENT [None]
  - BLOOD GLUCOSE INCREASED [None]
